FAERS Safety Report 24270902 (Version 1)
Quarter: 2024Q3

REPORT INFORMATION
  Report Type: Spontaneous
  Country: ES (occurrence: ES)
  Receive Date: 20240831
  Receipt Date: 20240831
  Transmission Date: 20241017
  Serious: Yes (Hospitalization)
  Sender: STRIDES
  Company Number: ES-STRIDES ARCOLAB LIMITED-2024SP010881

PATIENT
  Age: 23 Year
  Sex: Male

DRUGS (2)
  1. ETOPOSIDE [Suspect]
     Active Substance: ETOPOSIDE
     Indication: Testicular germ cell tumour mixed stage III
     Dosage: UNK
     Route: 065
  2. CISPLATIN [Suspect]
     Active Substance: CISPLATIN
     Indication: Testicular germ cell tumour mixed stage III
     Dosage: UNK
     Route: 065

REACTIONS (4)
  - Acute coronary syndrome [Recovered/Resolved]
  - Electrocardiogram ST segment elevation [Recovered/Resolved]
  - Pulmonary embolism [Recovered/Resolved]
  - Pulmonary infarction [Recovered/Resolved]
